FAERS Safety Report 5797070-5 (Version None)
Quarter: 2008Q3

REPORT INFORMATION
  Report Type: 
  Country: None (occurrence: None)
  Receive Date: 20080701
  Receipt Date: 20080625
  Transmission Date: 20090109
  Serious: Yes (Hospitalization)
  Sender: FDA-Public Use
  Company Number: US-ELI_LILLY_AND_COMPANY-US200806005966

PATIENT
  Sex: Male

DRUGS (4)
  1. HUMALOG [Suspect]
     Dates: start: 20070901
  2. HUMULIN R [Suspect]
     Dates: start: 19840101
  3. HUMULIN N [Suspect]
     Dates: start: 19840101
  4. LANTUS [Concomitant]

REACTIONS (6)
  - BLOOD GLUCOSE DECREASED [None]
  - BLOOD GLUCOSE INCREASED [None]
  - CARDIAC OPERATION [None]
  - FATIGUE [None]
  - LETHARGY [None]
  - WEIGHT INCREASED [None]
